FAERS Safety Report 26052370 (Version 1)
Quarter: 2025Q4

REPORT INFORMATION
  Report Type: Spontaneous
  Country: EU (occurrence: EU)
  Receive Date: 20251117
  Receipt Date: 20251117
  Transmission Date: 20260117
  Serious: Yes (Other)
  Sender: UCB
  Company Number: None

PATIENT
  Age: 53 Year

DRUGS (9)
  1. ZILUCOPLAN SODIUM [Suspect]
     Active Substance: ZILUCOPLAN SODIUM
     Indication: Myasthenia gravis
     Dosage: 1 DOSAGE FORM, ONCE DAILY (QD)
  2. OMEPRAZOL TEVA- RATIO 40 mg CAPSULAS DURAS GASTRORRESISTENTES, 28 c?ps [Concomitant]
     Indication: Product used for unknown indication
     Dosage: 40 MILLIGRAM, ONCE DAILY (QD)
  3. BILASTINA TEVA 10 MG COMPRIMIDOS BUCODISPERSABLES EFG, 20 comprimidos [Concomitant]
     Indication: Product used for unknown indication
     Dosage: 10 MILLIGRAM, ONCE DAILY (QD)
  4. BENADON 300 mg COMPRIMIDOS RECUBIERTOS CON PELICULA, 20 comprimidos [Concomitant]
     Indication: Product used for unknown indication
     Dosage: 300 MILLIGRAM, ONCE DAILY (QD)
  5. CALCIFEDIOL [Concomitant]
     Active Substance: CALCIFEDIOL
     Indication: Product used for unknown indication
     Dosage: 0.26 MILLIGRAM, MONTHLY (QM)
  6. OPTOVITE B12 1.000 MICROGRAMOS SOLUCI?N INYECTABLE , 5 ampollas de 2 m [Concomitant]
     Indication: Product used for unknown indication
     Dosage: 1 DOSAGE FORM, MONTHLY (QM)
  7. ACFOL 5 mg COMPRIMIDOS , 28 comprimidos [Concomitant]
     Indication: Product used for unknown indication
     Dosage: 5 MILLIGRAM, WEEKLY (QW)
  8. METHOFILL PEN 10 MG/0,20 ML SOLUCION INYECTABLE EN PLUMA PRECARGADA EF [Concomitant]
     Indication: Product used for unknown indication
     Dosage: 1 DOSAGE FORM, WEEKLY (QW)
  9. SINTROM [Concomitant]
     Active Substance: ACENOCOUMAROL
     Indication: Product used for unknown indication
     Dosage: AS PRESCRIBED

REACTIONS (1)
  - Eosinophilic fasciitis [Recovering/Resolving]
